FAERS Safety Report 5206241-8 (Version None)
Quarter: 2006Q4

REPORT INFORMATION
  Report Type: 
  Country: None (occurrence: None)
  Receive Date: 20061026
  Receipt Date: 20060724
  Transmission Date: 20070319
  Serious: No
  Sender: FDA-Public Use
  Company Number: 2006018463

PATIENT
  Age: 78 Year
  Sex: Female
  Weight: 113.3993 kg

DRUGS (6)
  1. LYRICA [Suspect]
     Indication: NEUROPATHY PERIPHERAL
     Dosage: 100 MG (50 MG, 2 IN 1 D), ORAL
     Route: 048
     Dates: start: 20060202
  2. INSULIN [Concomitant]
  3. IMDUR [Concomitant]
  4. BETAPACE [Concomitant]
  5. WARFARIN SODIUM [Concomitant]
  6. VALSARTAN [Concomitant]

REACTIONS (8)
  - ACTIVITIES OF DAILY LIVING IMPAIRED [None]
  - BALANCE DISORDER [None]
  - FATIGUE [None]
  - HYPERSOMNIA [None]
  - SLEEP DISORDER [None]
  - SOMNOLENCE [None]
  - VISUAL BRIGHTNESS [None]
  - VISUAL DISTURBANCE [None]
